FAERS Safety Report 19011498 (Version 1)
Quarter: 2021Q1

REPORT INFORMATION
  Report Type: Spontaneous
  Country: US (occurrence: US)
  Receive Date: 20210315
  Receipt Date: 20210315
  Transmission Date: 20210420
  Serious: Yes (Other)
  Sender: FDA-Public Use
  Company Number: None

PATIENT
  Age: 73 Year
  Sex: Female

DRUGS (11)
  1. OPSUMIT [Suspect]
     Active Substance: MACITENTAN
     Indication: PULMONARY HYPERTENSION
     Route: 048
     Dates: start: 20200114
  2. LACTULOSE. [Concomitant]
     Active Substance: LACTULOSE
  3. LEVOTHYROXINE. [Concomitant]
     Active Substance: LEVOTHYROXINE
  4. DEXTRIN\WHEAT [Concomitant]
     Active Substance: ICODEXTRIN\WHEAT
  5. FUROSEMIDE. [Concomitant]
     Active Substance: FUROSEMIDE
  6. VITAMIN C [Concomitant]
     Active Substance: ASCORBIC ACID
  7. SERTRALINE [Concomitant]
     Active Substance: SERTRALINE HYDROCHLORIDE
  8. WARFARIN [Concomitant]
     Active Substance: WARFARIN
  9. SPIRONOLACTONE. [Concomitant]
     Active Substance: SPIRONOLACTONE
  10. SENNA [Concomitant]
     Active Substance: SENNA LEAF\SENNOSIDES\SENNOSIDES A AND B
  11. MVI [Concomitant]
     Active Substance: VITAMINS

REACTIONS (3)
  - Drug ineffective [None]
  - Abdominal pain [None]
  - Constipation [None]

NARRATIVE: CASE EVENT DATE: 20210219
